FAERS Safety Report 5009729-8 (Version None)
Quarter: 2006Q2

REPORT INFORMATION
  Report Type: 
  Country: None (occurrence: None)
  Receive Date: 20060523
  Receipt Date: 20060523
  Transmission Date: 20061013
  Serious: Yes (Death)
  Sender: FDA-Public Use
  Company Number: None

PATIENT
  Age: 63 Year
  Sex: Female

DRUGS (1)
  1. PHENYTOIN [Suspect]
     Dosage: IVP OVER 60 MIN.
     Route: 042
     Dates: start: 20051128

REACTIONS (6)
  - ANOXIC ENCEPHALOPATHY [None]
  - CARDIO-RESPIRATORY ARREST [None]
  - HYPOTENSION [None]
  - MENINGITIS [None]
  - NEOPLASM MALIGNANT [None]
  - PUPIL FIXED [None]
